FAERS Safety Report 6142501-4 (Version None)
Quarter: 2009Q2

REPORT INFORMATION
  Report Type: 
  Country: None (occurrence: None)
  Receive Date: 20090403
  Receipt Date: 20090323
  Transmission Date: 20091009
  Serious: Yes (Other)
  Sender: FDA-Public Use
  Company Number: US-WYE-H08676809

PATIENT
  Sex: Male
  Weight: 68.1 kg

DRUGS (3)
  1. PRISTIQ [Suspect]
     Indication: DEPRESSION
     Route: 048
     Dates: start: 20090201
  2. VALIUM [Concomitant]
     Indication: NERVOUSNESS
     Dosage: UNKNOWN
  3. AMBIEN [Concomitant]
     Indication: INSOMNIA
     Dosage: UNKNOWN

REACTIONS (10)
  - AGGRESSION [None]
  - ALCOHOL USE [None]
  - ANGER [None]
  - DISSOCIATION [None]
  - HOSTILITY [None]
  - SOCIAL AVOIDANT BEHAVIOUR [None]
  - SUICIDAL IDEATION [None]
  - TOBACCO USER [None]
  - TREMOR [None]
  - WEIGHT DECREASED [None]
